FAERS Safety Report 24794052 (Version 3)
Quarter: 2025Q1

REPORT INFORMATION
  Report Type: Spontaneous
  Country: US (occurrence: US)
  Receive Date: 20241231
  Receipt Date: 20250127
  Transmission Date: 20250408
  Serious: No
  Sender: SANOFI AVENTIS
  Company Number: US-SA-2024SA380323

PATIENT
  Age: 51 Year
  Sex: Female

DRUGS (16)
  1. DUPIXENT [Suspect]
     Active Substance: DUPILUMAB
     Indication: Dermatitis atopic
     Dosage: 300 MG, QOW
     Route: 058
  2. DUPIXENT [Suspect]
     Active Substance: DUPILUMAB
     Dosage: 300 MG QOW
     Dates: start: 20230630, end: 20231204
  3. BIJUVA [Concomitant]
     Active Substance: ESTRADIOL\PROGESTERONE
  4. AMLODIPINE BESYLATE [Concomitant]
     Active Substance: AMLODIPINE BESYLATE
  5. NP THYROID [Concomitant]
     Active Substance: LEVOTHYROXINE\LIOTHYRONINE
  6. ONDANSETRON [Concomitant]
     Active Substance: ONDANSETRON
  7. VEOZAH [Concomitant]
     Active Substance: FEZOLINETANT
  8. SINGULAIR [Concomitant]
     Active Substance: MONTELUKAST SODIUM
     Dosage: 1.000DF QD
     Dates: start: 20221003, end: 20240131
  9. VALTREX [Concomitant]
     Active Substance: VALACYCLOVIR HYDROCHLORIDE
     Indication: Herpes simplex
     Dosage: 1 TAB DAILY
     Dates: start: 20220930, end: 20231103
  10. RINVOQ [Concomitant]
     Active Substance: UPADACITINIB
  11. DELTASONE [Concomitant]
     Active Substance: PREDNISONE
     Indication: Cough
     Dates: start: 20230612, end: 20240131
  12. LACTULOSE [Concomitant]
     Active Substance: LACTULOSE
     Route: 048
     Dates: start: 20230606, end: 20240424
  13. PRILOSEC [Concomitant]
     Active Substance: OMEPRAZOLE MAGNESIUM
     Dosage: 1.000DF BID
     Route: 048
     Dates: start: 20220610, end: 20231205
  14. ZOFRAN [Concomitant]
     Active Substance: ONDANSETRON HYDROCHLORIDE
     Indication: Nausea
     Dosage: 1 DF Q12H
     Route: 048
     Dates: start: 20221201, end: 20240621
  15. SYNTHROID [Concomitant]
     Active Substance: LEVOTHYROXINE SODIUM
     Dosage: 1.000DF QD
     Dates: start: 20230510, end: 20230928
  16. PAMELOR [Concomitant]
     Active Substance: NORTRIPTYLINE HYDROCHLORIDE
     Dosage: 1.000DF QD
     Route: 048
     Dates: start: 20230410, end: 20240424

REACTIONS (11)
  - Dry skin [Not Recovered/Not Resolved]
  - Depression [Not Recovered/Not Resolved]
  - Influenza [Unknown]
  - Cough [Unknown]
  - Diamine oxidase deficiency [Unknown]
  - Arthropod bite [Unknown]
  - Skin ulcer [Unknown]
  - Pruritus [Not Recovered/Not Resolved]
  - Drug ineffective [Unknown]
  - Dermatitis atopic [Unknown]
  - Hypersensitivity [Unknown]

NARRATIVE: CASE EVENT DATE: 20230101
